FAERS Safety Report 7395877-4 (Version None)
Quarter: 2011Q2

REPORT INFORMATION
  Report Type: 
  Country: None (occurrence: None)
  Receive Date: 20110406
  Receipt Date: 20110328
  Transmission Date: 20111010
  Serious: Yes (Other)
  Sender: FDA-Public Use
  Company Number: US-ASTRAZENECA-2011SE17690

PATIENT
  Age: 20518 Day

DRUGS (1)
  1. SEROQUEL [Suspect]
     Route: 048

REACTIONS (12)
  - COLON ADENOMA [None]
  - CORONARY ARTERY DISEASE [None]
  - CARDIAC FAILURE [None]
  - GOUTY ARTHRITIS [None]
  - DIABETIC NEPHROPATHY [None]
  - TYPE 2 DIABETES MELLITUS [None]
  - NEPHRITIS [None]
  - HYPERLIPIDAEMIA [None]
  - CAROTID ARTERY OCCLUSION [None]
  - OBESITY [None]
  - ESSENTIAL HYPERTENSION [None]
  - CARDIOMYOPATHY [None]
